FAERS Safety Report 16193047 (Version 2)
Quarter: 2019Q2

REPORT INFORMATION
  Report Type: Report from Study
  Country: None (occurrence: CO)
  Receive Date: 20190413
  Receipt Date: 20190502
  Transmission Date: 20190711
  Serious: Yes (Other)
  Sender: FDA-Public Use
  Company Number: CO-ABBVIE-18K-036-2274082-00

PATIENT
  Age: 56 Year
  Sex: Female
  Weight: 50 kg

DRUGS (3)
  1. HUMIRA [Suspect]
     Active Substance: ADALIMUMAB
     Indication: RHEUMATOID ARTHRITIS
     Route: 058
     Dates: start: 20171101, end: 20190313
  2. CALCITRIOL. [Concomitant]
     Active Substance: CALCITRIOL
     Indication: PRODUCT USED FOR UNKNOWN INDICATION
     Route: 048
  3. LEFLUNOMIDE. [Concomitant]
     Active Substance: LEFLUNOMIDE
     Indication: PRODUCT USED FOR UNKNOWN INDICATION
     Route: 065

REACTIONS (16)
  - Walking disability [Recovering/Resolving]
  - Amnesia [Recovering/Resolving]
  - Gastrooesophageal reflux disease [Recovering/Resolving]
  - Precancerous cells present [Recovering/Resolving]
  - Asphyxia [Recovering/Resolving]
  - Intervertebral disc protrusion [Recovering/Resolving]
  - Memory impairment [Recovering/Resolving]
  - Influenza [Recovering/Resolving]
  - Gastroenteritis bacterial [Not Recovered/Not Resolved]
  - Bronchiectasis [Recovering/Resolving]
  - Abdominal pain upper [Recovering/Resolving]
  - Spinal pain [Recovering/Resolving]
  - Nausea [Recovering/Resolving]
  - Gastroenteritis bacterial [Recovered/Resolved]
  - Diarrhoea [Recovering/Resolving]
  - Spinal pain [Not Recovered/Not Resolved]

NARRATIVE: CASE EVENT DATE: 2017
